FAERS Safety Report 4471862-7 (Version None)
Quarter: 2004Q4

REPORT INFORMATION
  Report Type: 
  Country: None (occurrence: None)
  Receive Date: 20041007
  Receipt Date: 20040929
  Transmission Date: 20050328
  Serious: Yes (Other)
  Sender: FDA-Public Use
  Company Number: 2004-07-0928

PATIENT
  Age: 31 Year
  Sex: Male

DRUGS (8)
  1. TEMODAL [Suspect]
     Indication: BRAIN NEOPLASM
     Dosage: SEE IMAGE
     Route: 048
     Dates: start: 20040719, end: 20040723
  2. TEMODAL [Suspect]
     Indication: BRAIN NEOPLASM
     Dosage: SEE IMAGE
     Route: 048
     Dates: start: 20040719, end: 20040820
  3. DEXAMETHASONE [Concomitant]
  4. LOSEC [Concomitant]
  5. DIPHANTOINE [Concomitant]
  6. DEPAKINE CHRONO (SODIUM VALPROATE) [Concomitant]
  7. KEPPRA [Concomitant]
  8. AERIOUS (DESLORATADINE) [Concomitant]

REACTIONS (2)
  - HAEMATEMESIS [None]
  - NAUSEA [None]
